FAERS Safety Report 15121929 (Version 1)
Quarter: 2018Q3

REPORT INFORMATION
  Report Type: Spontaneous
  Country: NZ (occurrence: NZ)
  Receive Date: 20180709
  Receipt Date: 20180709
  Transmission Date: 20181010
  Serious: Yes (Hospitalization)
  Sender: FDA-Public Use
  Company Number: NZ-PFIZER INC-2018266734

PATIENT
  Sex: Female

DRUGS (1)
  1. IBRANCE [Suspect]
     Active Substance: PALBOCICLIB
     Dosage: 100 MG, DAILY

REACTIONS (7)
  - Neutrophil count decreased [Recovered/Resolved]
  - Pyrexia [Unknown]
  - Rash erythematous [Recovering/Resolving]
  - Meningitis bacterial [Unknown]
  - Chills [Unknown]
  - Thrombocytopenia [Recovered/Resolved]
  - Photophobia [Unknown]

NARRATIVE: CASE EVENT DATE: 20180418
